FAERS Safety Report 15777898 (Version 1)
Quarter: 2018Q4

REPORT INFORMATION
  Report Type: Report from Study
  Country: BR (occurrence: BR)
  Receive Date: 20181231
  Receipt Date: 20181231
  Transmission Date: 20190205
  Serious: Yes (Hospitalization, Other)
  Sender: FDA-Public Use
  Company Number: PHHY2018BR197605

PATIENT
  Sex: Female
  Weight: 68 kg

DRUGS (4)
  1. ACLASTA [Suspect]
     Active Substance: ZOLEDRONIC ACID
     Indication: OSTEOPOROSIS
     Dosage: 1 DF, Q12MO (5MG/100ML)
     Route: 042
     Dates: start: 20161111
  2. GLUCOSAMIN SULFAT [Suspect]
     Active Substance: GLUCOSAMINE SULFATE
     Indication: PRODUCT USED FOR UNKNOWN INDICATION
     Route: 065
  3. ATORLESS [Concomitant]
     Indication: PRODUCT USED FOR UNKNOWN INDICATION
     Route: 065
  4. CALCIUM [Suspect]
     Active Substance: CALCIUM
     Indication: PRODUCT USED FOR UNKNOWN INDICATION
     Route: 065

REACTIONS (16)
  - Cardiomegaly [Unknown]
  - Fall [Unknown]
  - Device failure [Unknown]
  - Bronchitis [Unknown]
  - Infection [Unknown]
  - Speech disorder [Unknown]
  - Head discomfort [Unknown]
  - Myositis [Recovering/Resolving]
  - Pain [Unknown]
  - Abdominal discomfort [Unknown]
  - Nerve injury [Unknown]
  - Femur fracture [Unknown]
  - Sinusitis [Unknown]
  - Asthma [Unknown]
  - Memory impairment [Unknown]
  - Sluggishness [Unknown]

NARRATIVE: CASE EVENT DATE: 2018
